FAERS Safety Report 19509947 (Version 1)
Quarter: 2021Q3

REPORT INFORMATION
  Report Type: Spontaneous
  Country: US (occurrence: US)
  Receive Date: 20210709
  Receipt Date: 20210709
  Transmission Date: 20211014
  Serious: No
  Sender: FDA-Public Use
  Company Number: US-APOTEX-2021AP014450

PATIENT
  Sex: Female

DRUGS (12)
  1. TIZANIDINE TABLETS [Suspect]
     Active Substance: TIZANIDINE HYDROCHLORIDE
     Indication: MUSCLE SPASMS
     Dosage: 2 TABLETS OF 4 MILLIGRAM
     Route: 065
     Dates: start: 20210531
  2. TIZANIDINE TABLETS [Suspect]
     Active Substance: TIZANIDINE HYDROCHLORIDE
     Dosage: 4 TABLETS OF 2 MILLIGRAM
     Route: 065
     Dates: start: 20210603
  3. TIZANIDINE TABLETS [Suspect]
     Active Substance: TIZANIDINE HYDROCHLORIDE
     Dosage: 2 TABLETS OF 2 MILLIGRAM
     Route: 065
     Dates: start: 20210605
  4. TIZANIDINE TABLETS [Suspect]
     Active Substance: TIZANIDINE HYDROCHLORIDE
     Dosage: 3 TABLETS OF 2 MILLIGRAM
     Route: 065
     Dates: start: 20210601
  5. TIZANIDINE TABLETS [Suspect]
     Active Substance: TIZANIDINE HYDROCHLORIDE
     Dosage: 1 TABLET OF 2 MILLIGRAM
     Route: 065
     Dates: start: 20210607, end: 20210607
  6. LIDODERM [Concomitant]
     Active Substance: LIDOCAINE
     Indication: PAIN
     Dosage: ONCE TO TWICE A DAY
     Route: 061
  7. ACETAMINOPHEN. [Concomitant]
     Active Substance: ACETAMINOPHEN
     Indication: MYALGIA
     Dosage: 1000 MILLIGRAM, Q.6H
     Route: 065
  8. IBUPROFEN. [Concomitant]
     Active Substance: IBUPROFEN
     Indication: MYALGIA
     Dosage: 600 MILLIGRAM, EVERY 4?6 HOURS
     Route: 065
  9. TIZANIDINE TABLETS [Suspect]
     Active Substance: TIZANIDINE HYDROCHLORIDE
     Dosage: 5 TABLETS OF 2 MILLIGRAM
     Route: 065
     Dates: start: 20210602
  10. TIZANIDINE TABLETS [Suspect]
     Active Substance: TIZANIDINE HYDROCHLORIDE
     Dosage: 3 TABLETS OF 2 MILLIGRAM
     Route: 065
     Dates: start: 20210604
  11. TIZANIDINE TABLETS [Suspect]
     Active Substance: TIZANIDINE HYDROCHLORIDE
     Dosage: 2 TABLETS OF 2 MILLIGRAM
     Route: 065
     Dates: start: 20210606
  12. VOLTAREN [DICLOFENAC] [Concomitant]
     Active Substance: DICLOFENAC SODIUM
     Indication: PAIN
     Dosage: 4 GRAM, TID
     Route: 061

REACTIONS (4)
  - Palpitations [Unknown]
  - Withdrawal syndrome [Not Recovered/Not Resolved]
  - Tachycardia [Recovering/Resolving]
  - Blood pressure increased [Recovering/Resolving]

NARRATIVE: CASE EVENT DATE: 202106
